FAERS Safety Report 17359443 (Version 3)
Quarter: 2020Q1

REPORT INFORMATION
  Report Type: Other
  Country: DE (occurrence: DE)
  Receive Date: 20200203
  Receipt Date: 20200306
  Transmission Date: 20200409
  Serious: Yes (Hospitalization, Other)
  Sender: FDA-Public Use
  Company Number: DE-LUPIN PHARMACEUTICALS INC.-2020-00452

PATIENT
  Age: 22 Year
  Sex: Female
  Weight: 77.1 kg

DRUGS (3)
  1. LEVETIRACETAM. [Suspect]
     Active Substance: LEVETIRACETAM
     Indication: EPILEPSY
     Dosage: 25 MILLIGRAM
     Route: 065
     Dates: start: 20191220
  2. INTERFERON BETA 1A RECOMBINANT [Suspect]
     Active Substance: INTERFERON BETA-1A
     Indication: MULTIPLE SCLEROSIS
     Dosage: 30 MICROGRAM
     Route: 030
     Dates: start: 20170621
  3. LEVETIRACETAM. [Suspect]
     Active Substance: LEVETIRACETAM
     Dosage: UNK, DOSE REDUCED
     Route: 065
     Dates: start: 20191229

REACTIONS (3)
  - Pain in extremity [Recovered/Resolved]
  - Multiple sclerosis [Unknown]
  - Dizziness [Recovered/Resolved]

NARRATIVE: CASE EVENT DATE: 20191226
